FAERS Safety Report 7850550-0 (Version None)
Quarter: 2011Q4

REPORT INFORMATION
  Report Type: 
  Country: None (occurrence: None)
  Receive Date: 20111024
  Receipt Date: 20111012
  Transmission Date: 20120403
  Serious: Yes (Other)
  Sender: FDA-Public Use
  Company Number: ACO_27242_2011

PATIENT
  Age: 66 Year
  Sex: Male
  Weight: 86.1834 kg

DRUGS (8)
  1. DIGOXIN [Concomitant]
  2. WELCHOL [Concomitant]
  3. DOXAZOSIN MESYLATE [Concomitant]
  4. COREG [Concomitant]
  5. AMPYRA [Suspect]
     Indication: MUSCULAR WEAKNESS
     Dosage: 10 MG, BID, ORAL
     Route: 048
     Dates: start: 20101027, end: 20110624
  6. OXYBUTYNIN [Concomitant]
  7. PROPAFENONE HCL [Concomitant]
  8. REBIF [Suspect]
     Indication: MULTIPLE SCLEROSIS
     Dates: start: 20080101, end: 20110601

REACTIONS (4)
  - INSOMNIA [None]
  - HEPATIC ENZYME INCREASED [None]
  - ABNORMAL DREAMS [None]
  - DRUG INEFFECTIVE [None]
